FAERS Safety Report 4945934-4 (Version None)
Quarter: 2006Q1

REPORT INFORMATION
  Report Type: 
  Country: None (occurrence: None)
  Receive Date: 20060316
  Receipt Date: 20060314
  Transmission Date: 20060701
  Serious: Yes (Other)
  Sender: FDA-Public Use
  Company Number: JP-BOEHRINGER INGELHEIM PHARMACEUTICALS, INC.-2006-BP-02899NB

PATIENT
  Age: 70 Year
  Sex: Female

DRUGS (2)
  1. MICARDIS [Suspect]
     Indication: HYPERTENSION
     Route: 048
     Dates: start: 20060210, end: 20060314
  2. AMLODIPINE BESYLATE [Concomitant]
     Indication: HYPERTENSION
     Route: 048

REACTIONS (1)
  - PULMONARY OEDEMA [None]
